FAERS Safety Report 5016628-4 (Version None)
Quarter: 2006Q2

REPORT INFORMATION
  Report Type: 
  Country: None (occurrence: None)
  Receive Date: 20060419
  Receipt Date: 20060110
  Transmission Date: 20061013
  Serious: No
  Sender: FDA-Public Use
  Company Number: US200601001384

PATIENT
  Sex: Female

DRUGS (4)
  1. ALIMTA [Suspect]
     Indication: LUNG CANCER METASTATIC
     Dates: start: 20060106
  2. CYANOCOBALAMIN [Concomitant]
  3. FOLIC ACID [Concomitant]
  4. DECADRON SRC [Concomitant]

REACTIONS (1)
  - EXTRAPYRAMIDAL DISORDER [None]
